FAERS Safety Report 9026324 (Version 1)
Quarter: 2012Q4

REPORT INFORMATION
  Report Type: Spontaneous
  Country: US (occurrence: None)
  Receive Date: 20121214
  Receipt Date: 20121214
  Transmission Date: 20130627
  Serious: No
  Sender: FDA-Public Use
  Company Number: None

PATIENT
  Sex: Female
  Weight: 83.46 kg

DRUGS (2)
  1. SUMATRIPTAN [Suspect]
     Indication: MIGRAINE
     Route: 048
  2. SUMATRIPTAN [Suspect]
     Indication: MIGRAINE
     Route: 048

REACTIONS (3)
  - Product substitution issue [None]
  - Therapeutic response unexpected with drug substitution [None]
  - Drug ineffective [None]
